FAERS Safety Report 22257077 (Version 5)
Quarter: 2024Q2

REPORT INFORMATION
  Report Type: Report from Study
  Country: CA (occurrence: CA)
  Receive Date: 20230427
  Receipt Date: 20240606
  Transmission Date: 20240716
  Serious: Yes (Other)
  Sender: FDA-Public Use
  Company Number: CA-BIOGEN-2021BI01035566

PATIENT
  Age: 46 Year
  Sex: Female

DRUGS (6)
  1. TYSABRI [Suspect]
     Active Substance: NATALIZUMAB
     Indication: Multiple sclerosis
     Dosage: Q4-8WEEKS
     Route: 050
     Dates: start: 20201202, end: 20210303
  2. TYSABRI [Suspect]
     Active Substance: NATALIZUMAB
     Dosage: Q4-8WEEKS
     Route: 050
     Dates: start: 20210304
  3. TYSABRI [Suspect]
     Active Substance: NATALIZUMAB
     Dosage: Q4-8WEEKS
     Route: 050
     Dates: start: 20201202, end: 20210303
  4. TYSABRI [Suspect]
     Active Substance: NATALIZUMAB
     Dosage: Q4-8WEEKS
     Route: 050
     Dates: start: 20201202
  5. TYSABRI [Suspect]
     Active Substance: NATALIZUMAB
     Dosage: Q4-8WEEKS
     Route: 050
     Dates: start: 20201202
  6. TYSABRI [Suspect]
     Active Substance: NATALIZUMAB
     Dosage: Q4-8WEEKS
     Route: 050
     Dates: start: 20201202

REACTIONS (23)
  - Type 2 diabetes mellitus [Unknown]
  - Herpes ophthalmic [Recovered/Resolved]
  - Multiple sclerosis relapse [Recovered/Resolved]
  - Prescribed underdose [Not Recovered/Not Resolved]
  - Drug monitoring procedure not performed [Unknown]
  - Incorrect drug administration rate [Unknown]
  - Hypoaesthesia [Not Recovered/Not Resolved]
  - Paraesthesia [Not Recovered/Not Resolved]
  - Contusion [Not Recovered/Not Resolved]
  - Balance disorder [Unknown]
  - Pollakiuria [Recovered/Resolved]
  - Fall [Recovered/Resolved]
  - Nasopharyngitis [Recovered/Resolved]
  - Gastrointestinal disorder [Not Recovered/Not Resolved]
  - Mental impairment [Not Recovered/Not Resolved]
  - Gait disturbance [Not Recovered/Not Resolved]
  - Ear pain [Not Recovered/Not Resolved]
  - Migraine [Unknown]
  - Musculoskeletal procedural complication [Unknown]
  - Procedural pain [Unknown]
  - Headache [Not Recovered/Not Resolved]
  - Fatigue [Not Recovered/Not Resolved]
  - Joint swelling [Not Recovered/Not Resolved]

NARRATIVE: CASE EVENT DATE: 20210304
